FAERS Safety Report 5444620-4 (Version None)
Quarter: 2007Q3

REPORT INFORMATION
  Report Type: 
  Country: None (occurrence: None)
  Receive Date: 20070904
  Receipt Date: 20070904
  Transmission Date: 20080115
  Serious: Yes (Hospitalization)
  Sender: FDA-Public Use
  Company Number: None

PATIENT
  Sex: Female
  Weight: 70 kg

DRUGS (1)
  1. KELNOR [Suspect]
     Indication: ORAL CONTRACEPTION
     Dosage: 1 ONCE A DAY PO
     Route: 048
     Dates: start: 20070710, end: 20070825

REACTIONS (1)
  - JAUNDICE CHOLESTATIC [None]
